FAERS Safety Report 4598785-7 (Version None)
Quarter: 2005Q1

REPORT INFORMATION
  Report Type: 
  Country: None (occurrence: None)
  Receive Date: 20050301
  Receipt Date: 20050301
  Transmission Date: 20050727
  Serious: Yes (Other)
  Sender: FDA-Public Use
  Company Number: None

PATIENT
  Sex: Female

DRUGS (4)
  1. ARIPIPRAZOLE 15 MG [Suspect]
     Indication: SCHIZOPHRENIA
     Dosage: 15 MG HS ORAL
     Route: 048
     Dates: start: 20040823, end: 20040902
  2. TOPIRAMATE [Concomitant]
  3. LITHIUM [Concomitant]
  4. OMEPRAZOLE [Concomitant]

REACTIONS (1)
  - EPISTAXIS [None]
